FAERS Safety Report 9141073 (Version 6)
Quarter: 2015Q3

REPORT INFORMATION
  Report Type: Report from Study
  Country: BR (occurrence: BR)
  Receive Date: 20130305
  Receipt Date: 20150813
  Transmission Date: 20151125
  Serious: Yes (Hospitalization, Other)
  Sender: FDA-Public Use
  Company Number: BR-PFIZER INC-2009305636

PATIENT
  Age: 55 Year
  Sex: Female
  Weight: 56 kg

DRUGS (6)
  1. FRONTAL [Suspect]
     Active Substance: ALPRAZOLAM
     Indication: SLEEP DISORDER
  2. FRONTAL [Suspect]
     Active Substance: ALPRAZOLAM
     Indication: ANXIETY
     Dosage: 4 MG IN THE MORNING (2 TABLETS OF 2MG) AND 5MG IN THE EVENING (2 TABLETS AND HALF TABLET OF 2MG)
     Route: 048
     Dates: start: 2002
  3. FRONTAL XR [Suspect]
     Active Substance: ALPRAZOLAM
     Dosage: UNK
     Route: 048
     Dates: start: 2001
  4. FRONTAL [Suspect]
     Active Substance: ALPRAZOLAM
     Indication: DEPRESSION
     Dosage: 2 MG, UNK
     Route: 048
     Dates: start: 1997, end: 2002
  5. MAXIMUS A-Z COM OMEGA 3 [Suspect]
     Active Substance: MINERALS\OMEGA-3 FATTY ACIDS\VITAMINS
     Dosage: UNK
     Dates: start: 20150223
  6. FRONTAL [Suspect]
     Active Substance: ALPRAZOLAM
     Indication: RELAXATION THERAPY

REACTIONS (27)
  - Haemorrhage [Recovered/Resolved]
  - Pain in extremity [Not Recovered/Not Resolved]
  - Gastritis [Unknown]
  - Intentional product misuse [Unknown]
  - Depression [Unknown]
  - Insomnia [Unknown]
  - Abdominal discomfort [Not Recovered/Not Resolved]
  - Drug withdrawal syndrome [Recovered/Resolved]
  - Heart rate increased [Unknown]
  - Anxiety [Not Recovered/Not Resolved]
  - Throat irritation [Unknown]
  - Hiatus hernia [Unknown]
  - Feeling abnormal [Recovered/Resolved]
  - Panic reaction [Unknown]
  - Feeling hot [Unknown]
  - Tremor [Recovered/Resolved]
  - Paraesthesia [Unknown]
  - Burning sensation [Unknown]
  - Gastrointestinal pain [Recovered/Resolved]
  - Agitation [Unknown]
  - Abdominal pain upper [Unknown]
  - Body temperature increased [Unknown]
  - Gastrooesophageal reflux disease [Not Recovered/Not Resolved]
  - Weight decreased [Not Recovered/Not Resolved]
  - Nervousness [Unknown]
  - Drug ineffective [Not Recovered/Not Resolved]
  - Dyspepsia [Not Recovered/Not Resolved]

NARRATIVE: CASE EVENT DATE: 2009
